FAERS Safety Report 12946652 (Version 1)
Quarter: 2016Q4

REPORT INFORMATION
  Report Type: Spontaneous
  Country: US (occurrence: US)
  Receive Date: 20161116
  Receipt Date: 20161116
  Transmission Date: 20170207
  Serious: No
  Sender: FDA-Public Use
  Company Number: US-BAYER-2016-219011

PATIENT
  Sex: Female

DRUGS (7)
  1. CLARITIN [Suspect]
     Active Substance: LORATADINE
     Indication: THROAT TIGHTNESS
  2. CLARITIN [Suspect]
     Active Substance: LORATADINE
     Indication: SENSATION OF FOREIGN BODY
  3. CLARITIN [Suspect]
     Active Substance: LORATADINE
     Indication: PRURITUS
  4. CLARITIN [Suspect]
     Active Substance: LORATADINE
     Indication: HYPERSENSITIVITY
     Dosage: 1 DF, QD
     Route: 048
     Dates: start: 201611
  5. CLARITIN [Suspect]
     Active Substance: LORATADINE
     Indication: NASOPHARYNGITIS
  6. CLARITIN [Suspect]
     Active Substance: LORATADINE
     Indication: SCRATCH
  7. CLARITIN [Suspect]
     Active Substance: LORATADINE
     Indication: PARAESTHESIA

REACTIONS (4)
  - Off label use [Unknown]
  - Product use issue [Not Recovered/Not Resolved]
  - Therapeutic response unexpected [Not Recovered/Not Resolved]
  - Product use issue [Unknown]

NARRATIVE: CASE EVENT DATE: 201611
